FAERS Safety Report 6176015-2 (Version None)
Quarter: 2009Q2

REPORT INFORMATION
  Report Type: 
  Country: None (occurrence: None)
  Receive Date: 20090501
  Receipt Date: 20090420
  Transmission Date: 20091009
  Serious: Yes (Hospitalization)
  Sender: FDA-Public Use
  Company Number: FR-AVENTIS-200911536FR

PATIENT
  Age: 53 Year
  Sex: Female
  Weight: 63 kg

DRUGS (1)
  1. ARAVA [Suspect]
     Indication: ANKYLOSING SPONDYLITIS
     Route: 048
     Dates: start: 20050101, end: 20081215

REACTIONS (10)
  - BURN OESOPHAGEAL [None]
  - CYTOLYTIC HEPATITIS [None]
  - DYSGEUSIA [None]
  - FATIGUE [None]
  - GENERAL PHYSICAL HEALTH DETERIORATION [None]
  - HOT FLUSH [None]
  - MALAISE [None]
  - OFF LABEL USE [None]
  - TACHYCARDIA [None]
  - WEIGHT DECREASED [None]
